FAERS Safety Report 5981892-1 (Version None)
Quarter: 2008Q4

REPORT INFORMATION
  Report Type: 
  Country: None (occurrence: None)
  Receive Date: 20081205
  Receipt Date: 20081201
  Transmission Date: 20090506
  Serious: Yes (Other)
  Sender: FDA-Public Use
  Company Number: JP-MERCK-0812USA00601

PATIENT
  Age: 90 Year
  Sex: Male

DRUGS (2)
  1. COZAAR [Suspect]
     Route: 048
     Dates: start: 20080830
  2. OMEPRAL [Suspect]
     Route: 065

REACTIONS (1)
  - PANCYTOPENIA [None]
